FAERS Safety Report 5643292-3 (Version None)
Quarter: 2008Q1

REPORT INFORMATION
  Report Type: 
  Country: None (occurrence: None)
  Receive Date: 20080228
  Receipt Date: 20080220
  Transmission Date: 20080703
  Serious: Yes (Other)
  Sender: FDA-Public Use
  Company Number: US-JNJFOC-20080205164

PATIENT
  Sex: Female

DRUGS (2)
  1. RAZADYNE [Suspect]
     Indication: DRUG USE FOR UNKNOWN INDICATION
  2. ROZEREM [Suspect]
     Indication: DRUG USE FOR UNKNOWN INDICATION

REACTIONS (4)
  - ABNORMAL DREAMS [None]
  - DRUG DISPENSING ERROR [None]
  - MEDICATION ERROR [None]
  - SOMNOLENCE [None]
